FAERS Safety Report 13654842 (Version 2)
Quarter: 2018Q1

REPORT INFORMATION
  Report Type: Spontaneous
  Country: US (occurrence: US)
  Receive Date: 20170615
  Receipt Date: 20180105
  Transmission Date: 20180508
  Serious: Yes (Life-Threatening, Hospitalization, Other)
  Sender: FDA-Public Use
  Company Number: US-SUN PHARMACEUTICAL INDUSTRIES LTD-2017US-142174

PATIENT
  Age: 63 Year
  Sex: Female

DRUGS (3)
  1. METOPROLOL. [Interacting]
     Active Substance: METOPROLOL
     Indication: ATRIAL FIBRILLATION
     Dosage: UNK
     Route: 042
  2. METOPROLOL. [Suspect]
     Active Substance: METOPROLOL
     Indication: ATRIAL FIBRILLATION
     Dosage: UNK
     Route: 048
  3. FEXOFENADINE/PSEUDOEPHEDRINE [Interacting]
     Active Substance: FEXOFENADINE\PSEUDOEPHEDRINE
     Indication: NASAL DECONGESTION THERAPY
     Dosage: UNK, DAILY
     Route: 065

REACTIONS (4)
  - Atrial fibrillation [Unknown]
  - Acute myocardial infarction [Unknown]
  - Drug interaction [Unknown]
  - Arteriospasm coronary [Recovered/Resolved]
